FAERS Safety Report 17600247 (Version 13)
Quarter: 2023Q2

REPORT INFORMATION
  Report Type: Report from Study
  Country: GB (occurrence: GB)
  Receive Date: 20200330
  Receipt Date: 20230404
  Transmission Date: 20230721
  Serious: Yes (Hospitalization)
  Sender: FDA-Public Use
  Company Number: GB-ROCHE-1614575

PATIENT
  Age: 79 Year
  Sex: Female

DRUGS (66)
  1. TRASTUZUMAB [Suspect]
     Active Substance: TRASTUZUMAB
     Indication: HER2 positive breast cancer
     Dosage: 600 MILLIGRAM, Q3W (START DATE: 02-JUN-2017 )
     Route: 042
     Dates: end: 20170626
  2. TRASTUZUMAB [Suspect]
     Active Substance: TRASTUZUMAB
     Indication: Breast cancer metastatic
     Dosage: 336 MILLIGRAM,LOADING DOSE
     Route: 042
     Dates: start: 20150430, end: 20150430
  3. TRASTUZUMAB [Suspect]
     Active Substance: TRASTUZUMAB
     Dosage: 273 MILLIGRAM, Q3W
     Route: 042
     Dates: start: 20160422, end: 20170414
  4. TRASTUZUMAB [Suspect]
     Active Substance: TRASTUZUMAB
     Dosage: 294 MILLIGRAM, Q3W
     Route: 042
     Dates: start: 20150724, end: 20160218
  5. TRASTUZUMAB [Suspect]
     Active Substance: TRASTUZUMAB
     Dosage: 294 MILLIGRAM, Q3W
     Route: 042
     Dates: start: 20160311, end: 20160421
  6. TRASTUZUMAB [Suspect]
     Active Substance: TRASTUZUMAB
     Dosage: 252 MILLIGRAM, Q3W, (MAINTANANCE DOSE)
     Route: 042
     Dates: start: 20150522, end: 20150723
  7. TRASTUZUMAB [Suspect]
     Active Substance: TRASTUZUMAB
     Dosage: 273 MILLIGRAM, Q3W
     Route: 042
     Dates: start: 20160219, end: 20160310
  8. TRASTUZUMAB [Suspect]
     Active Substance: TRASTUZUMAB
     Dosage: 336 MILLIGRAM, LOADING DOSE
     Route: 042
     Dates: start: 20150430, end: 20150430
  9. TRASTUZUMAB [Suspect]
     Active Substance: TRASTUZUMAB
     Dosage: 336 MILLIGRAM, Q3W LOADING DOSE
     Route: 042
     Dates: start: 20150430, end: 20150521
  10. TRASTUZUMAB [Suspect]
     Active Substance: TRASTUZUMAB
     Dosage: 600 MILLIGRAM, Q3W (START DATE: 02-JUN-2017 )
     Route: 058
  11. TRASTUZUMAB [Suspect]
     Active Substance: TRASTUZUMAB
     Dosage: 520 MILLIGRAM, Q3W, START DATE: 16-FEB-2017
     Route: 042
     Dates: end: 20170309
  12. TRASTUZUMAB [Suspect]
     Active Substance: TRASTUZUMAB
     Dosage: 390 MILLIGRAM, Q3W, START DATE: 10-MAR-2017
     Route: 042
     Dates: end: 20171117
  13. LETROZOLE [Suspect]
     Active Substance: LETROZOLE
     Indication: HER2 positive breast cancer
     Dosage: 2.5 MILLIGRAM, QD (START DATE: 22-JUN-2016)
     Route: 048
     Dates: end: 2016
  14. LETROZOLE [Suspect]
     Active Substance: LETROZOLE
     Indication: Breast cancer metastatic
  15. DOCETAXEL [Suspect]
     Active Substance: DOCETAXEL
     Indication: HER2 positive breast cancer
     Dosage: 65 MILLIGRAM, Q3W
     Route: 042
     Dates: start: 20150430, end: 20150520
  16. DOCETAXEL [Suspect]
     Active Substance: DOCETAXEL
     Indication: Breast cancer metastatic
     Dosage: 132 MILLIGRAM, Q3W , START DATE: 16-FEB-2017
     Route: 042
     Dates: end: 20170602
  17. PERTUZUMAB [Suspect]
     Active Substance: PERTUZUMAB
     Indication: HER2 positive breast cancer
     Dosage: UNK
     Route: 065
  18. PERTUZUMAB [Suspect]
     Active Substance: PERTUZUMAB
     Indication: Breast cancer metastatic
     Dosage: 840 MILLIGRAM
     Route: 042
     Dates: start: 20150429, end: 20150429
  19. PERTUZUMAB [Suspect]
     Active Substance: PERTUZUMAB
     Dosage: 420 MILLIGRAM, Q3W
     Route: 042
     Dates: start: 20150522, end: 20170531
  20. PERTUZUMAB [Suspect]
     Active Substance: PERTUZUMAB
     Dosage: 840 MILLIGRAM, Q3W
     Route: 042
     Dates: start: 20150429, end: 20150521
  21. PERTUZUMAB [Suspect]
     Active Substance: PERTUZUMAB
     Dosage: 840 MILLIGRAM, Q3W, START DATE: 16-FEB-2017
     Route: 042
     Dates: end: 20170309
  22. PERTUZUMAB [Suspect]
     Active Substance: PERTUZUMAB
     Dosage: 420 MILLIGRAM, Q3W, START DATE: 10-MAR-2017
     Route: 042
  23. CALCIUM\CHOLECALCIFEROL [Concomitant]
     Active Substance: CALCIUM\CHOLECALCIFEROL
     Dosage: 1250 MILLIGRAM 0.5 DAY,BID (S22-JUN-2016)
     Route: 048
     Dates: end: 20170728
  24. CALCIUM\CHOLECALCIFEROL [Concomitant]
     Active Substance: CALCIUM\CHOLECALCIFEROL
     Dosage: 1250 MILLIGRAM, QD
     Route: 048
     Dates: start: 20160624
  25. BENDROFLUMETHIAZIDE [Concomitant]
     Active Substance: BENDROFLUMETHIAZIDE
     Dosage: 2.5 MILLIGRAM, QD
     Route: 048
     Dates: end: 2015
  26. CODEINE [Concomitant]
     Active Substance: CODEINE
     Dosage: 15 MILLIGRAM (START DATE: 12-JUN-2015)
     Route: 048
  27. OMEPRAZOLE [Concomitant]
     Active Substance: OMEPRAZOLE
     Dosage: 20 MILLIGRAM, QD (START DATE: 17-MAY-2017)
     Route: 048
     Dates: end: 20170728
  28. BUTYLSCOPOLAMINE BROMIDE [Concomitant]
     Active Substance: BUTYLSCOPOLAMINE BROMIDE
     Indication: Urinary tract infection
     Dosage: 20 MILLIGRAM START DATE: 11-MAY-2017
     Route: 048
     Dates: end: 20170511
  29. LISINOPRIL [Concomitant]
     Active Substance: LISINOPRIL
     Dosage: 2.5 MILLIGRAM, QD
     Route: 048
     Dates: end: 20170728
  30. DEXAMETHASONE [Concomitant]
     Active Substance: DEXAMETHASONE
     Dosage: 8 MILLIGRAM, QD
     Route: 048
     Dates: start: 20150417, end: 20150420
  31. DEXAMETHASONE [Concomitant]
     Active Substance: DEXAMETHASONE
     Dosage: 8 MILLIGRAM, QD
     Route: 048
     Dates: start: 20150430, end: 20150503
  32. DEXAMETHASONE [Concomitant]
     Active Substance: DEXAMETHASONE
     Dosage: 4 MILLIGRAM, BID (0.5 DAY)
     Route: 048
     Dates: start: 20170517, end: 20170728
  33. DEXAMETHASONE [Concomitant]
     Active Substance: DEXAMETHASONE
     Dosage: 8 MILLIGRAM (START DATE: 16-FEB-2017, STOP DATE: 22-JUN-2017)
     Route: 065
  34. LEVOFLOXACIN [Concomitant]
     Active Substance: LEVOFLOXACIN
     Dosage: 500 MILLIGRAM, QD START DATE: 17-MAY-2017
     Route: 048
     Dates: end: 20170523
  35. HALOPERIDOL [Concomitant]
     Active Substance: HALOPERIDOL
     Dosage: 500 MICROGRAM, QD (START DATE: 11-MAY-2017)
     Route: 048
     Dates: end: 20170728
  36. NIFEDIPINE [Concomitant]
     Active Substance: NIFEDIPINE
     Dosage: 60 MILLIGRAM, QD START DATE: 28-JUL-2017
     Route: 048
  37. ACETAMINOPHEN [Concomitant]
     Active Substance: ACETAMINOPHEN
     Dosage: 1 GRAM
     Route: 048
     Dates: start: 2013
  38. DOCUSATE SODIUM [Concomitant]
     Active Substance: DOCUSATE SODIUM
     Dosage: 200 MILLIGRAM (START DATE: 18-MAY-2017)
     Route: 048
     Dates: end: 20170728
  39. ASCORBIC ACID [Concomitant]
     Active Substance: ASCORBIC ACID
     Dosage: UNK (START DATE: 13-MAY-2017)
     Route: 042
     Dates: end: 20170515
  40. LEVOMEPROMAZINE [Concomitant]
     Active Substance: LEVOMEPROMAZINE
     Dosage: 6 MILLIGRAM, TID (0.33DAY)(START DATE: 12-MAY-2017)
     Route: 048
     Dates: end: 20170528
  41. LEVOMEPROMAZINE [Concomitant]
     Active Substance: LEVOMEPROMAZINE
     Dosage: 20 MILLIGRAM, QD, START DATE: 17-MAY-2017
     Route: 048
     Dates: end: 20170728
  42. CALCIUM CARBONATE\CHOLECALCIFEROL [Concomitant]
     Active Substance: CALCIUM CARBONATE\CHOLECALCIFEROL
     Dosage: UNK
     Route: 065
  43. CALCIUM CARBONATE\CHOLECALCIFEROL [Concomitant]
     Active Substance: CALCIUM CARBONATE\CHOLECALCIFEROL
     Dosage: UNK
     Route: 065
  44. ALFENTANIL [Concomitant]
     Active Substance: ALFENTANIL
     Dosage: UNK
     Route: 065
  45. DENOSUMAB [Concomitant]
     Active Substance: DENOSUMAB
     Dosage: 10 MILLIGRAM (START DATE: 14-JUL-2017, STOP DATE: 4-MAY-2022)
     Route: 065
  46. LOPERAMIDE [Concomitant]
     Active Substance: LOPERAMIDE
     Dosage: UNK (START DATE: 14-JUL-2017)
     Route: 065
  47. POLYETHYLENE GLYCOLS [Concomitant]
     Active Substance: POLYETHYLENE GLYCOLS
     Dosage: UNK
     Route: 065
  48. MAGNESIUM ASPARTATE [Concomitant]
     Active Substance: MAGNESIUM ASPARTATE
     Dosage: UNK
     Route: 065
  49. MIDAZOLAM [Concomitant]
     Active Substance: MIDAZOLAM
     Dosage: UNK
     Route: 065
  50. MORPHINE SULFATE [Concomitant]
     Active Substance: MORPHINE SULFATE
     Dosage: UNK
     Route: 065
  51. NALOXEGOL [Concomitant]
     Active Substance: NALOXEGOL
     Dosage: UNK
     Route: 065
  52. ONDANSETRON [Concomitant]
     Active Substance: ONDANSETRON
     Dosage: 8 MILLIGRAM START DATE: 16-FEB-2017
     Route: 065
     Dates: end: 20170602
  53. QUININE SULFATE [Concomitant]
     Active Substance: QUININE SULFATE
     Dosage: UNK
     Route: 065
  54. ALBUTEROL [Concomitant]
     Active Substance: ALBUTEROL
     Dosage: UNK
     Route: 065
  55. SOLIFENACIN [Concomitant]
     Active Substance: SOLIFENACIN
     Dosage: UNK
     Route: 065
  56. PIPERACILLIN SODIUM\TAZOBACTAM SODIUM [Concomitant]
     Active Substance: PIPERACILLIN SODIUM\TAZOBACTAM SODIUM
     Dosage: UNK
     Route: 065
  57. TINZAPARIN [Concomitant]
     Active Substance: TINZAPARIN
     Dosage: UNK
     Route: 065
  58. TRAMADOL [Concomitant]
     Active Substance: TRAMADOL
     Dosage: 50 MILLIGRAM, QID
     Route: 048
  59. METOCLOPRAMIDE [Concomitant]
     Active Substance: METOCLOPRAMIDE
     Dosage: UNK
     Route: 065
  60. VITAMIN D [Concomitant]
     Active Substance: VITAMIN D NOS
     Dosage: UNK
     Route: 065
  61. CALCIUM [Concomitant]
     Active Substance: CALCIUM
     Dosage: UNK
     Route: 065
  62. CARBOCYSTEINE [Concomitant]
     Active Substance: CARBOCYSTEINE
     Dosage: UNK
     Route: 065
  63. CYCLIZINE [Concomitant]
     Active Substance: CYCLIZINE
     Dosage: UNK
     Route: 065
  64. BUTYLSCOPOLAMINE BROMIDE [Concomitant]
     Active Substance: BUTYLSCOPOLAMINE BROMIDE
     Dosage: UNK
     Route: 065
  65. GLYCERIN [Concomitant]
     Active Substance: GLYCERIN
     Dosage: UNK
     Route: 065
  66. SENNA [Concomitant]
     Active Substance: SENNA LEAF\SENNOSIDES\SENNOSIDES A AND B
     Dosage: UNK
     Route: 065

REACTIONS (11)
  - Chest pain [Recovered/Resolved]
  - Dyspnoea [Recovered/Resolved]
  - Hepatitis E [Recovered/Resolved]
  - Diarrhoea [Recovered/Resolved]
  - Vomiting [Recovered/Resolved]
  - Fatigue [Recovered/Resolved]
  - Eye infection [Recovered/Resolved]
  - Nausea [Recovered/Resolved]
  - Abdominal pain [Recovered/Resolved]
  - Lethargy [Recovered/Resolved]
  - Blood alkaline phosphatase increased [Recovered/Resolved]

NARRATIVE: CASE EVENT DATE: 20150501
